FAERS Safety Report 14259967 (Version 8)
Quarter: 2020Q4

REPORT INFORMATION
  Report Type: Spontaneous
  Country: US (occurrence: US)
  Receive Date: 20171207
  Receipt Date: 20201124
  Transmission Date: 20210113
  Serious: Yes (Hospitalization)
  Sender: FDA-Public Use
  Company Number: US-VIFOR (INTERNATIONAL) INC.-VIT-2017-09983

PATIENT
  Age: 67 Year
  Sex: Female

DRUGS (16)
  1. CALCIUM [Concomitant]
     Active Substance: CALCIUM
  2. ATORVASTATIN CALCIUM. [Concomitant]
     Active Substance: ATORVASTATIN CALCIUM
  3. ALLOPURINOL. [Concomitant]
     Active Substance: ALLOPURINOL
  4. LUCENTIS [Concomitant]
     Active Substance: RANIBIZUMAB
  5. SIMVASTATIN. [Concomitant]
     Active Substance: SIMVASTATIN
  6. AMLODIPINE BESYLATE. [Concomitant]
     Active Substance: AMLODIPINE BESYLATE
  7. CYTRA-2 [Concomitant]
     Active Substance: CITRIC ACID MONOHYDRATE\TRISODIUM CITRATE DIHYDRATE
  8. FUROSEMIDE. [Concomitant]
     Active Substance: FUROSEMIDE
  9. VELTASSA [Suspect]
     Active Substance: PATIROMER
     Indication: HYPERKALAEMIA
     Route: 048
  10. LOSARTAN POTASSIUM. [Concomitant]
     Active Substance: LOSARTAN POTASSIUM
  11. CALCITRIOL. [Concomitant]
     Active Substance: CALCITRIOL
  12. SPIRONOLACTONE. [Concomitant]
     Active Substance: SPIRONOLACTONE
  13. VELTASSA [Suspect]
     Active Substance: PATIROMER
     Route: 048
     Dates: start: 20170926
  14. VITAMIN B12 [Concomitant]
     Active Substance: CYANOCOBALAMIN
  15. METOPROLOL TARTRATE. [Concomitant]
     Active Substance: METOPROLOL TARTRATE
  16. VITAMIN D2 [Concomitant]
     Active Substance: ERGOCALCIFEROL

REACTIONS (7)
  - Coronavirus infection [Unknown]
  - Diarrhoea [Not Recovered/Not Resolved]
  - Nausea [Unknown]
  - Product taste abnormal [Unknown]
  - Abdominal discomfort [Unknown]
  - Abdominal pain upper [Unknown]
  - Hospitalisation [Unknown]

NARRATIVE: CASE EVENT DATE: 201709
